FAERS Safety Report 9312033 (Version 4)
Quarter: 2014Q1

REPORT INFORMATION
  Report Type: Report from Study
  Country: GB (occurrence: GB)
  Receive Date: 20130528
  Receipt Date: 20140212
  Transmission Date: 20141002
  Serious: Yes (Other)
  Sender: FDA-Public Use
  Company Number: GB-009507513-1305GBR012376

PATIENT
  Age: 59 Year
  Sex: Male
  Weight: 71 kg

DRUGS (3)
  1. POSACONAZOLE [Suspect]
     Indication: ANTIFUNGAL PROPHYLAXIS
     Dosage: 400 MG, BID
     Route: 048
     Dates: start: 20130429, end: 20130529
  2. TAZOCIN [Concomitant]
     Indication: PNEUMONIA
     Dosage: UNK UNK, TID
     Route: 042
     Dates: start: 20130428, end: 20130429
  3. TEICOPLANIN [Concomitant]
     Indication: PNEUMONIA
     Dosage: UNK UNK, QD
     Route: 042
     Dates: start: 20130428, end: 20130430

REACTIONS (1)
  - Renal failure acute [Recovered/Resolved]
